FAERS Safety Report 25902934 (Version 1)
Quarter: 2025Q4

REPORT INFORMATION
  Report Type: Spontaneous
  Country: US (occurrence: US)
  Receive Date: 20251009
  Receipt Date: 20251009
  Transmission Date: 20260117
  Serious: Yes (Other)
  Sender: ABBVIE
  Company Number: US-ABBVIE-6494664

PATIENT
  Sex: Female

DRUGS (2)
  1. SYNTHROID [Suspect]
     Active Substance: LEVOTHYROXINE SODIUM
     Indication: Thyroid disorder
     Route: 048
  2. LEVOXYL [Suspect]
     Active Substance: LEVOTHYROXINE SODIUM
     Indication: Thyroid disorder
     Dosage: FORM STRENGTH: 50MCG
     Route: 065

REACTIONS (9)
  - Seizure [Unknown]
  - Fall [Unknown]
  - Stress [Unknown]
  - Arrhythmic storm [Unknown]
  - Graves^ disease [Unknown]
  - Sepsis [Unknown]
  - Nervous system disorder [Unknown]
  - Sight disability [Unknown]
  - Adverse drug reaction [Unknown]

NARRATIVE: CASE EVENT DATE: 20250101
